APPROVED DRUG PRODUCT: BREXPIPRAZOLE
Active Ingredient: BREXPIPRAZOLE
Strength: 2MG
Dosage Form/Route: TABLET;ORAL
Application: A213692 | Product #004
Applicant: TEVA PHARMACEUTICALS USA INC
Approved: Aug 11, 2022 | RLD: No | RS: No | Type: DISCN